FAERS Safety Report 7512686-3 (Version None)
Quarter: 2011Q2

REPORT INFORMATION
  Report Type: 
  Country: None (occurrence: None)
  Receive Date: 20110531
  Receipt Date: 20090411
  Transmission Date: 20111010
  Serious: Yes (Death, Hospitalization, Other)
  Sender: FDA-Public Use
  Company Number: US-BAYER-200917837NA

PATIENT
  Age: 70 Year
  Sex: Female
  Weight: 42.3 kg

DRUGS (13)
  1. MANNITOL [Concomitant]
     Dosage: INFUSION
     Dates: start: 20060224
  2. TRASYLOL [Suspect]
     Indication: CORONARY ARTERY BYPASS
     Dosage: UNK
     Dates: start: 20060224, end: 20060224
  3. ZOCOR [Concomitant]
     Dosage: 30 MG, QD
  4. HYZAAR [Concomitant]
     Dosage: 100.25 MG, QD
  5. PROTONIX [Concomitant]
     Dosage: 40 MG, QD
  6. VASOPRESSIN [Concomitant]
     Dosage: 50 MCGS INFUSION
     Dates: start: 20060226
  7. MORPHINE SULFATE [Concomitant]
     Dosage: INFUSION
     Dates: start: 20060224
  8. DOPAMINE HCL [Concomitant]
     Dosage: INFUSION
     Dates: start: 20060226
  9. MILRINONE [Concomitant]
     Dosage: INFUSION
     Dates: start: 20060224
  10. FENTANYL [Concomitant]
     Dosage: INFUSION
     Dates: start: 20060226
  11. COREG [Concomitant]
     Dosage: 3.125 MG, BID
  12. RED BLOOD CELLS [Concomitant]
  13. HEPARIN [Concomitant]
     Dosage: INFUSION
     Dates: start: 20060224

REACTIONS (9)
  - ANXIETY [None]
  - FEAR [None]
  - RENAL FAILURE [None]
  - INJURY [None]
  - UNEVALUABLE EVENT [None]
  - DEPRESSION [None]
  - PAIN [None]
  - ANHEDONIA [None]
  - DEATH [None]
